FAERS Safety Report 23358431 (Version 1)
Quarter: 2024Q1

REPORT INFORMATION
  Report Type: Spontaneous
  Country: IL (occurrence: IL)
  Receive Date: 20240102
  Receipt Date: 20240102
  Transmission Date: 20240410
  Serious: Yes (Death)
  Sender: FDA-Public Use
  Company Number: IL-002147023-NVSC2023IL275006

PATIENT
  Sex: Male

DRUGS (1)
  1. SCEMBLIX [Suspect]
     Active Substance: ASCIMINIB HYDROCHLORIDE
     Indication: Product used for unknown indication
     Dosage: 200 MG, BID (STARTED TREATMENT A WEEK AGO AS ADVANCED LINE THERAPY, AFTER RELAPSE ON PONATINIB)
     Route: 065

REACTIONS (2)
  - Death [Fatal]
  - Hypernatraemia [Unknown]
